FAERS Safety Report 8573175-0 (Version None)
Quarter: 2012Q3

REPORT INFORMATION
  Report Type: 
  Country: None (occurrence: None)
  Receive Date: 20120806
  Receipt Date: 20120727
  Transmission Date: 20120928
  Serious: Yes (Death, Life-Threatening, Hospitalization, Other)
  Sender: FDA-Public Use
  Company Number: FR-PFIZER INC-2012104520

PATIENT
  Age: 54 Year
  Sex: Female

DRUGS (4)
  1. PANTOPRAZOLE [Suspect]
     Dosage: 40 MG, 2X/DAY
     Route: 048
     Dates: start: 20120108, end: 20120101
  2. OXACILLIN [Suspect]
     Indication: STAPHYLOCOCCAL INFECTION
     Dosage: 1.5 G, 4X/DAY
     Route: 042
     Dates: start: 20120107
  3. GENTAMICIN [Suspect]
     Indication: STAPHYLOCOCCAL INFECTION
     Dosage: UNK
     Route: 048
     Dates: start: 20120107, end: 20120109
  4. IOMEPROL [Suspect]
     Indication: COMPUTERISED TOMOGRAM
     Dosage: 350 IU, SINGLE
     Route: 042
     Dates: start: 20120108, end: 20120108

REACTIONS (3)
  - SEPSIS [None]
  - DEATH [None]
  - RENAL FAILURE [None]
